FAERS Safety Report 7198398-7 (Version None)
Quarter: 2010Q4

REPORT INFORMATION
  Report Type: 
  Country: None (occurrence: None)
  Receive Date: 20101227
  Receipt Date: 20101214
  Transmission Date: 20110411
  Serious: Yes (Hospitalization)
  Sender: FDA-Public Use
  Company Number: PHHY2010KR84916

PATIENT
  Sex: Female

DRUGS (1)
  1. ACLASTA [Suspect]
     Indication: OSTEOPOROSIS
     Dosage: 5 MG
     Route: 042
     Dates: start: 20081121, end: 20100125

REACTIONS (4)
  - COMPRESSION FRACTURE [None]
  - FALL [None]
  - HIP FRACTURE [None]
  - SURGERY [None]
